FAERS Safety Report 10930891 (Version 1)
Quarter: 2015Q1

REPORT INFORMATION
  Report Type: Report from Study
  Country: US (occurrence: US)
  Receive Date: 20150319
  Receipt Date: 20150319
  Transmission Date: 20150721
  Serious: Yes (Hospitalization)
  Sender: FDA-Public Use
  Company Number: US-GILEAD-2015-0140846

PATIENT
  Age: 76 Year
  Sex: Female

DRUGS (22)
  1. SPIRONOLACTONE. [Concomitant]
     Active Substance: SPIRONOLACTONE
  2. SYMBICORT [Concomitant]
     Active Substance: BUDESONIDE\FORMOTEROL FUMARATE DIHYDRATE
  3. LOSARTAN [Concomitant]
     Active Substance: LOSARTAN
  4. OMPRAZOLE [Concomitant]
     Active Substance: OMEPRAZOLE
  5. AMBRISENTAN [Suspect]
     Active Substance: AMBRISENTAN
     Indication: COR PULMONALE CHRONIC
     Dosage: 10 MG, QD
     Route: 065
     Dates: start: 20120417
  6. DILTIAZEM HYDROCHLORIDE EXTENDED RELEASE [Concomitant]
     Active Substance: DILTIAZEM HYDROCHLORIDE
  7. ALPRAZOLAM. [Concomitant]
     Active Substance: ALPRAZOLAM
  8. ADCIRCA [Concomitant]
     Active Substance: TADALAFIL
  9. ACTONEL [Concomitant]
     Active Substance: RISEDRONATE SODIUM
  10. AMBRISENTAN [Suspect]
     Active Substance: AMBRISENTAN
     Indication: PULMONARY ARTERIAL HYPERTENSION
  11. CLONAZEPAM. [Concomitant]
     Active Substance: CLONAZEPAM
  12. FUROSEMIDE. [Concomitant]
     Active Substance: FUROSEMIDE
  13. TYVASO [Concomitant]
     Active Substance: TREPROSTINIL
  14. LEVOTHYROXINE [Concomitant]
     Active Substance: LEVOTHYROXINE
  15. LIPITOR [Concomitant]
     Active Substance: ATORVASTATIN CALCIUM
  16. BACLOFEN. [Concomitant]
     Active Substance: BACLOFEN
  17. COLACE [Concomitant]
     Active Substance: DOCUSATE SODIUM
  18. DOXYCYCLINE. [Concomitant]
     Active Substance: DOXYCYCLINE
  19. COMBIVENT [Concomitant]
     Active Substance: ALBUTEROL SULFATE\IPRATROPIUM BROMIDE
  20. ROPINIROLE. [Concomitant]
     Active Substance: ROPINIROLE
  21. WARFARIN [Concomitant]
     Active Substance: WARFARIN
  22. OMEPRAZOLE. [Concomitant]
     Active Substance: OMEPRAZOLE

REACTIONS (6)
  - Dyspnoea [Unknown]
  - Viral infection [Unknown]
  - Dyspnoea [Unknown]
  - Restless legs syndrome [Unknown]
  - Dizziness [Unknown]
  - Chest discomfort [Unknown]

NARRATIVE: CASE EVENT DATE: 20150228
